FAERS Safety Report 20094459 (Version 5)
Quarter: 2022Q3

REPORT INFORMATION
  Report Type: Spontaneous
  Country: US (occurrence: US)
  Receive Date: 20211122
  Receipt Date: 20220830
  Transmission Date: 20221027
  Serious: Yes (Hospitalization, Other)
  Sender: FDA-Public Use
  Company Number: US-SA-SAC20211115001421

PATIENT
  Age: 67 Year
  Sex: Female

DRUGS (2)
  1. AUBAGIO [Suspect]
     Active Substance: TERIFLUNOMIDE
     Indication: Multiple sclerosis
     Dosage: 14 MG, QD
     Route: 048
     Dates: start: 20170609
  2. AUBAGIO [Suspect]
     Active Substance: TERIFLUNOMIDE
     Dosage: 14 MG, QD
     Route: 048
     Dates: start: 20191001

REACTIONS (25)
  - Abdominal pain [Unknown]
  - Depression [Unknown]
  - Back pain [Unknown]
  - Diarrhoea [Unknown]
  - Fatigue [Unknown]
  - Headache [Unknown]
  - Infection [Unknown]
  - Nausea [Unknown]
  - Paraesthesia [Unknown]
  - Vomiting [Unknown]
  - Sensory disturbance [Unknown]
  - Gastrointestinal infection [Unknown]
  - Bladder disorder [Unknown]
  - Functional gastrointestinal disorder [Unknown]
  - Cognitive disorder [Unknown]
  - Vertigo [Unknown]
  - Multiple sclerosis relapse [Not Recovered/Not Resolved]
  - Balance disorder [Unknown]
  - Dyspnoea [Unknown]
  - Dizziness [Unknown]
  - Muscle spasticity [Unknown]
  - Musculoskeletal stiffness [Unknown]
  - Pain [Unknown]
  - Bladder disorder [Unknown]
  - Product dose omission issue [Unknown]

NARRATIVE: CASE EVENT DATE: 20220201
